FAERS Safety Report 21305554 (Version 1)
Quarter: 2022Q3

REPORT INFORMATION
  Report Type: Spontaneous
  Country: DE (occurrence: DE)
  Receive Date: 20220908
  Receipt Date: 20220908
  Transmission Date: 20221027
  Serious: Yes (Other)
  Sender: FDA-Public Use
  Company Number: DE-002147023-NVSC2022DE193628

PATIENT
  Age: 37 Year
  Sex: Female

DRUGS (3)
  1. ARIPIPRAZOLE [Suspect]
     Active Substance: ARIPIPRAZOLE
     Indication: Product used for unknown indication
     Dosage: UNK
     Route: 065
  2. OLANZAPINE [Suspect]
     Active Substance: OLANZAPINE
     Indication: Product used for unknown indication
     Dosage: UNK
     Route: 065
  3. RISPERIDONE [Suspect]
     Active Substance: RISPERIDONE
     Indication: Product used for unknown indication
     Dosage: UNK (13 YEARS)
     Route: 065

REACTIONS (5)
  - Hyperprolactinaemia [Recovered/Resolved]
  - Hypothyroidism [Recovered/Resolved]
  - Blood glucose increased [Recovered/Resolved]
  - Weight increased [Recovered/Resolved]
  - Infertility [Not Recovered/Not Resolved]
